FAERS Safety Report 7229268-3 (Version None)
Quarter: 2011Q1

REPORT INFORMATION
  Report Type: 
  Country: None (occurrence: None)
  Receive Date: 20110117
  Receipt Date: 20110112
  Transmission Date: 20110831
  Serious: Yes (Hospitalization)
  Sender: FDA-Public Use
  Company Number: JP-PFIZER INC-2011002084

PATIENT
  Age: 66 Year
  Sex: Male

DRUGS (1)
  1. SOLU-CORTEF [Suspect]
     Dosage: UNK
     Route: 042
     Dates: start: 20091201

REACTIONS (1)
  - PNEUMOCYSTIS JIROVECI PNEUMONIA [None]
